FAERS Safety Report 4476202-5 (Version None)
Quarter: 2004Q3

REPORT INFORMATION
  Report Type: 
  Country: None (occurrence: None)
  Receive Date: 20040923
  Receipt Date: 20040729
  Transmission Date: 20050211
  Serious: No
  Sender: FDA-Public Use
  Company Number: USA040774067

PATIENT
  Age: 58 Year
  Sex: Female

DRUGS (8)
  1. FORTEO [Suspect]
     Indication: OSTEOPOROSIS
     Dates: start: 20040601
  2. PREMARIN [Concomitant]
  3. ZOLOFT [Concomitant]
  4. LAMICTAL [Concomitant]
  5. TRAZODONE HCL [Concomitant]
  6. LOTREL [Concomitant]
  7. ZOCOR [Concomitant]
  8. CORTEF [Concomitant]

REACTIONS (4)
  - FATIGUE [None]
  - HEADACHE [None]
  - NASOPHARYNGITIS [None]
  - RHINORRHOEA [None]
